FAERS Safety Report 7511369-3 (Version None)
Quarter: 2011Q2

REPORT INFORMATION
  Report Type: 
  Country: None (occurrence: None)
  Receive Date: 20110531
  Receipt Date: 20110519
  Transmission Date: 20111010
  Serious: Yes (Hospitalization, Other)
  Sender: FDA-Public Use
  Company Number: US-BAYER-201030275NA

PATIENT
  Age: 28 Year
  Sex: Female
  Weight: 47.619 kg

DRUGS (11)
  1. YAZ [Suspect]
     Indication: PREMENSTRUAL SYNDROME
  2. YAZ [Suspect]
  3. YASMIN [Suspect]
     Indication: CONTRACEPTION
     Dosage: QD
     Route: 048
     Dates: start: 20050601, end: 20060801
  4. YASMIN [Suspect]
     Indication: ACNE
  5. YASMIN [Suspect]
     Indication: PREMENSTRUAL SYNDROME
  6. ASTELIN [Concomitant]
     Dosage: 2 PUFF(S), BID
     Route: 048
     Dates: start: 20020101
  7. TRAZODONE HCL [Concomitant]
     Dosage: 50-100 MG, HS
     Route: 048
     Dates: start: 20020101
  8. YAZ [Suspect]
     Indication: CONTRACEPTION
     Dosage: QD
     Route: 048
     Dates: start: 20081201, end: 20090601
  9. YAZ [Suspect]
     Indication: ACNE
  10. ADDERALL XR 10 [Concomitant]
     Dosage: 10 MG, QD
     Route: 048
     Dates: start: 20040101
  11. YASMIN [Suspect]

REACTIONS (4)
  - CHOLECYSTITIS [None]
  - CHOLELITHIASIS [None]
  - GALLBLADDER DISORDER [None]
  - ABDOMINAL PAIN [None]
